FAERS Safety Report 4685233-1 (Version None)
Quarter: 2005Q2

REPORT INFORMATION
  Report Type: 
  Country: None (occurrence: None)
  Receive Date: 20050603
  Receipt Date: 20050519
  Transmission Date: 20051028
  Serious: Yes (Hospitalization, Other)
  Sender: FDA-Public Use
  Company Number: 209520

PATIENT
  Age: 39 Year
  Sex: Female
  Weight: 93 kg

DRUGS (3)
  1. MABTHERA(RITUXIMAB) CONC FOR INFUSION CONC FOR SOLUTION FOR INFUSION [Suspect]
     Indication: MEDICATION ERROR
     Dosage: 210 MG, SINGLE, INTRAVENOUS
     Route: 042
     Dates: start: 20041005, end: 20041005
  2. VINORELBINE TARTRATE [Concomitant]
  3. ACETAMINOPHEN [Concomitant]

REACTIONS (11)
  - ABDOMINAL PAIN [None]
  - BREAST CANCER RECURRENT [None]
  - CHILLS [None]
  - DRUG DISPENSING ERROR [None]
  - HEADACHE [None]
  - INCORRECT DRUG ADMINISTRATION RATE [None]
  - INFUSION RELATED REACTION [None]
  - MEDICATION ERROR [None]
  - PARAESTHESIA [None]
  - PARAESTHESIA ORAL [None]
  - PYREXIA [None]
